FAERS Safety Report 12320000 (Version 1)
Quarter: 2016Q2

REPORT INFORMATION
  Report Type: Spontaneous
  Country: US (occurrence: US)
  Receive Date: 20160429
  Receipt Date: 20160429
  Transmission Date: 20160815
  Serious: No
  Sender: FDA-Public Use
  Company Number: US-ROCHE-1712872

PATIENT
  Sex: Female

DRUGS (7)
  1. ASPIRIN. [Concomitant]
     Active Substance: ASPIRIN
  2. AVASTIN [Suspect]
     Active Substance: BEVACIZUMAB
     Indication: NEOVASCULAR AGE-RELATED MACULAR DEGENERATION
     Route: 065
  3. EYLEA [Suspect]
     Active Substance: AFLIBERCEPT
     Route: 065
     Dates: start: 20160119
  4. LANSOPRAZOL [Concomitant]
     Active Substance: LANSOPRAZOLE
  5. LISINOPRIL. [Concomitant]
     Active Substance: LISINOPRIL
  6. ESCITALOPRAM [Concomitant]
     Active Substance: ESCITALOPRAM OXALATE
  7. EYLEA [Suspect]
     Active Substance: AFLIBERCEPT
     Indication: NEOVASCULAR AGE-RELATED MACULAR DEGENERATION
     Route: 065

REACTIONS (1)
  - Psoriasis [Unknown]
